FAERS Safety Report 4551418-8 (Version None)
Quarter: 2005Q1

REPORT INFORMATION
  Report Type: 
  Country: None (occurrence: None)
  Receive Date: 20050107
  Receipt Date: 20041222
  Transmission Date: 20050727
  Serious: Yes (Other)
  Sender: FDA-Public Use
  Company Number: S04-FIN-08302-01

PATIENT
  Age: 35 Year
  Sex: Male

DRUGS (1)
  1. CITALOPRAM HYDROBROMIDE [Suspect]
     Indication: DEPRESSION
     Dosage: 20 MG QD PO
     Route: 048
     Dates: start: 20040725, end: 20041128

REACTIONS (3)
  - EPILEPSY [None]
  - NEUROLOGICAL SYMPTOM [None]
  - PARAESTHESIA [None]
